FAERS Safety Report 11790715 (Version 1)
Quarter: 2015Q4

REPORT INFORMATION
  Report Type: Spontaneous
  Country: IL (occurrence: IL)
  Receive Date: 20151201
  Receipt Date: 20151201
  Transmission Date: 20160305
  Serious: Yes (Death)
  Sender: FDA-Public Use
  Company Number: IL-TEVA-614271ISR

PATIENT

DRUGS (6)
  1. FOLINIC ACID [Concomitant]
     Active Substance: LEUCOVORIN
     Dosage: 50 MG/M2 X 8 EVERY 3 HOURS; THEN ORAL
     Route: 042
  2. METHOTREXATE [Suspect]
     Active Substance: METHOTREXATE
     Indication: OSTEOSARCOMA
     Dosage: ONCE-WEEKLY HIGH-DOSE PULSES OVER 6 HOURS IN WEEKS 1-2
     Route: 041
  3. DEXRAZOXANE. [Concomitant]
     Active Substance: DEXRAZOXANE
     Dosage: 300 MG/M2 ON DAYS 1-3 OF WEEK 3
     Route: 065
  4. FOLINIC ACID [Concomitant]
     Active Substance: LEUCOVORIN
     Dosage: 45 MG/M2 X 8 EVERY 6 HOURS
     Route: 048
  5. CISPLATIN. [Suspect]
     Active Substance: CISPLATIN
     Indication: OSTEOSARCOMA
     Dosage: 40 MG/M2/DAY OVER 21-24 HOURS ON DAYS 1-5 OF WEEK 3
     Route: 041
  6. DOXORUBICIN [Suspect]
     Active Substance: DOXORUBICIN
     Indication: OSTEOSARCOMA
     Dosage: 30 MG/M2/DAY OVER 3 HOURS ON DAYS 1-5 OF WEEK 3
     Route: 041

REACTIONS (1)
  - Acute myeloid leukaemia [Fatal]
